FAERS Safety Report 4773973-5 (Version None)
Quarter: 2005Q3

REPORT INFORMATION
  Report Type: 
  Country: None (occurrence: None)
  Receive Date: 20050919
  Receipt Date: 20050908
  Transmission Date: 20060218
  Serious: Yes (Hospitalization)
  Sender: FDA-Public Use
  Company Number: MEDI-0003673

PATIENT
  Age: 54 Year
  Sex: Female
  Weight: 61.6892 kg

DRUGS (11)
  1. ETHYOL [Suspect]
     Indication: RADIOTHERAPY
     Dosage: 500 MG, SUBCUTANEOUS DIVIDED INTO TWO INJECTIONS
     Route: 058
     Dates: start: 20050825, end: 20050902
  2. ETHYOL [Suspect]
     Indication: RADIOTHERAPY
     Dosage: 500 MG, SUBCUTANEOUS DIVIDED INTO TWO INJECTIONS
     Route: 058
     Dates: start: 20050907, end: 20050907
  3. RADIATION THERAPY [Concomitant]
  4. ATENOLOL [Concomitant]
  5. IBUPROFEN [Concomitant]
  6. FISH OIL (FISH OIL) [Concomitant]
  7. VIATAMIN E (TOCOPHEROL) [Concomitant]
  8. ZINC (ZINC) [Concomitant]
  9. BLACK COHOSH (CIMICIFUGA RACEMOSA ROOT) [Concomitant]
  10. EFFEXOR [Concomitant]
  11. CLARITIN [Concomitant]

REACTIONS (8)
  - DYSPNOEA [None]
  - MALAISE [None]
  - NAUSEA [None]
  - PALMAR ERYTHEMA [None]
  - PHARYNGOLARYNGEAL PAIN [None]
  - PRURITUS [None]
  - URTICARIA [None]
  - VOMITING [None]
